FAERS Safety Report 6638414-1 (Version None)
Quarter: 2010Q1

REPORT INFORMATION
  Report Type: 
  Country: None (occurrence: None)
  Receive Date: 20100317
  Receipt Date: 20100304
  Transmission Date: 20100710
  Serious: No
  Sender: FDA-Public Use
  Company Number: US-B.I. PHARMACEUTICALS,INC./RIDGEFIELD-2010-BP-00491BP

PATIENT
  Sex: Male

DRUGS (1)
  1. RANITIDINE HCL [Suspect]
     Indication: DYSPEPSIA
     Dosage: 150 MG
     Route: 048
     Dates: start: 20091101

REACTIONS (1)
  - DRUG SCREEN FALSE POSITIVE [None]
